FAERS Safety Report 19016571 (Version 1)
Quarter: 2021Q1

REPORT INFORMATION
  Report Type: Spontaneous
  Country: US (occurrence: US)
  Receive Date: 20210317
  Receipt Date: 20210317
  Transmission Date: 20210420
  Serious: No
  Sender: FDA-Public Use
  Company Number: US-GLOBAL BLOOD THERAPEUTICS INC-US-GBT-21-00513

PATIENT
  Sex: Female

DRUGS (4)
  1. ADAKVEO [Concomitant]
     Active Substance: CRIZANLIZUMAB-TMCA
     Indication: PRODUCT USED FOR UNKNOWN INDICATION
     Dosage: NOT PROVIDED.
  2. OXBRYTA [Suspect]
     Active Substance: VOXELOTOR
     Indication: SICKLE CELL DISEASE
     Dosage: NOT PROVIDED.
     Dates: start: 2019
  3. ENDARI [Concomitant]
     Active Substance: GLUTAMINE
     Indication: PRODUCT USED FOR UNKNOWN INDICATION
     Dosage: NOT PROVIDED
  4. HYDROXYUREA. [Concomitant]
     Active Substance: HYDROXYUREA
     Indication: PRODUCT USED FOR UNKNOWN INDICATION
     Dosage: NOT PROVIDED.

REACTIONS (1)
  - Gastrointestinal disorder [Unknown]
